FAERS Safety Report 21586044 (Version 1)
Quarter: 2022Q4

REPORT INFORMATION
  Report Type: Spontaneous
  Country: JP (occurrence: JP)
  Receive Date: 20221111
  Receipt Date: 20221111
  Transmission Date: 20230113
  Serious: Yes (Other)
  Sender: FDA-Public Use
  Company Number: JP-AMGEN-JPNSP2022192737

PATIENT

DRUGS (1)
  1. ROMOSOZUMAB [Suspect]
     Active Substance: ROMOSOZUMAB
     Indication: Osteoporosis
     Dosage: UNK
     Route: 065

REACTIONS (10)
  - Abdominal injury [Unknown]
  - Haematoma muscle [Unknown]
  - Sensory loss [Not Recovered/Not Resolved]
  - Spinal column injury [Unknown]
  - Osteosclerosis [Unknown]
  - Spinal fracture [Unknown]
  - Bone cyst [Unknown]
  - Fracture [Unknown]
  - Spinal stenosis [Unknown]
  - Pain in extremity [Unknown]
